FAERS Safety Report 15929475 (Version 5)
Quarter: 2021Q2

REPORT INFORMATION
  Report Type: Spontaneous
  Country: US (occurrence: US)
  Receive Date: 20190206
  Receipt Date: 20210518
  Transmission Date: 20210716
  Serious: Yes (Other)
  Sender: FDA-Public Use
  Company Number: US-GILEAD-2019-0387808

PATIENT
  Age: 62 Year
  Sex: Male
  Weight: 56.7 kg

DRUGS (55)
  1. PREZISTA [Concomitant]
     Active Substance: DARUNAVIR ETHANOLATE
     Indication: HIV INFECTION
     Route: 048
  2. CLARITIN ALLERGY DECONGESTANT [Concomitant]
     Indication: HYPERSENSITIVITY
     Dosage: UNK
     Route: 048
     Dates: start: 20131106, end: 20161116
  3. SINGULAIR [Concomitant]
     Active Substance: MONTELUKAST SODIUM
     Indication: ASTHMA
     Route: 048
  4. GABAPENTIN. [Concomitant]
     Active Substance: GABAPENTIN
     Indication: MYALGIA
     Dosage: UNK
     Route: 048
     Dates: start: 20130925
  5. CARBAMAZEPINE. [Concomitant]
     Active Substance: CARBAMAZEPINE
     Indication: NEUROPATHY PERIPHERAL
  6. TRAMADOL. [Concomitant]
     Active Substance: TRAMADOL
     Indication: MYALGIA
     Dosage: UNK
     Route: 048
     Dates: start: 20170321
  7. STRIBILD [Suspect]
     Active Substance: COBICISTAT\ELVITEGRAVIR\EMTRICITABINE\TENOFOVIR DISOPROXIL FUMARATE
     Indication: HIV INFECTION
     Dosage: UNK
     Route: 048
     Dates: start: 2012
  8. ISENTRESS [Concomitant]
     Active Substance: RALTEGRAVIR POTASSIUM
     Indication: HIV INFECTION
     Dosage: UNK
     Route: 048
     Dates: start: 20150423
  9. VIRAMUNE XR [Concomitant]
     Active Substance: NEVIRAPINE
     Indication: HIV INFECTION
     Dosage: UNK
     Route: 048
     Dates: start: 20060401
  10. DICLOFENAC [Concomitant]
     Active Substance: DICLOFENAC
     Indication: PAIN
     Dosage: UNK
     Route: 048
     Dates: start: 20140723, end: 20161116
  11. QVAR [Concomitant]
     Active Substance: BECLOMETHASONE DIPROPIONATE
     Indication: ASTHMA
     Dosage: UNK
     Route: 048
     Dates: start: 20130726, end: 20140723
  12. IBUPROFEN. [Concomitant]
     Active Substance: IBUPROFEN
  13. FLUTICASONE. [Concomitant]
     Active Substance: FLUTICASONE
  14. ZERIT [Concomitant]
     Active Substance: STAVUDINE
     Indication: HIV INFECTION
     Dosage: UNK
     Route: 048
     Dates: start: 20060401
  15. AIRET [SALBUTAMOL SULFATE] [Concomitant]
     Indication: ASTHMA
     Route: 048
  16. SIMBICORT TURBUHALER [Concomitant]
     Active Substance: BUDESONIDE\FORMOTEROL FUMARATE
     Indication: ASTHMA
     Route: 048
  17. MELATONIN [Concomitant]
     Active Substance: MELATONIN
  18. EMTRIVA [Concomitant]
     Active Substance: EMTRICITABINE
     Indication: HIV INFECTION
     Dosage: UNK
     Route: 048
  19. ALBUTEROL [SALBUTAMOL] [Concomitant]
     Active Substance: ALBUTEROL
     Indication: ASTHMA
     Dosage: UNK
     Route: 048
     Dates: start: 20071128
  20. ALLEGRA [Concomitant]
     Active Substance: FEXOFENADINE HYDROCHLORIDE
     Indication: ASTHMA
     Dosage: UNK
     Route: 048
     Dates: start: 20061031
  21. DEPO?TESTOSTERONE [Concomitant]
     Active Substance: TESTOSTERONE CYPIONATE
     Indication: BLOOD TESTOSTERONE DECREASED
     Dosage: UNK
     Route: 048
     Dates: start: 20150708, end: 20161116
  22. NYSTATIN. [Concomitant]
     Active Substance: NYSTATIN
     Indication: ANTIFUNGAL TREATMENT
     Dosage: UNK
     Route: 048
     Dates: start: 20150128, end: 20161116
  23. CARBAMAZEPINE. [Concomitant]
     Active Substance: CARBAMAZEPINE
     Indication: MYALGIA
     Route: 048
  24. VISTARIL [Concomitant]
     Active Substance: HYDROXYZINE PAMOATE
     Indication: ANXIETY
     Dosage: UNK
     Dates: start: 20090627, end: 20110720
  25. ANDROGEL [Concomitant]
     Active Substance: TESTOSTERONE
     Indication: BLOOD TESTOSTERONE DECREASED
     Dosage: UNK
     Route: 048
     Dates: start: 20150521, end: 20160626
  26. CLARITIN ALLERGIC [Concomitant]
     Active Substance: OXYMETAZOLINE HYDROCHLORIDE
     Indication: HYPERSENSITIVITY
     Dosage: UNK
     Route: 048
     Dates: start: 20090414, end: 20161116
  27. PROAIR HFA [Concomitant]
     Active Substance: ALBUTEROL SULFATE
     Indication: ASTHMA
     Dosage: UNK
     Route: 048
     Dates: start: 20081125, end: 20190314
  28. LEXAPRO [Concomitant]
     Active Substance: ESCITALOPRAM OXALATE
     Indication: SLEEP DISORDER
     Route: 048
  29. NAPROXEN. [Concomitant]
     Active Substance: NAPROXEN
     Indication: NEUROPATHY PERIPHERAL
     Dosage: UNK
     Route: 048
  30. VISTARIL [Concomitant]
     Active Substance: HYDROXYZINE PAMOATE
     Indication: RASH
  31. ALENDRONAT [Concomitant]
     Active Substance: ALENDRONATE SODIUM
  32. TAMSULOSIN [Concomitant]
     Active Substance: TAMSULOSIN
  33. BECONASE AQ [Concomitant]
     Active Substance: BECLOMETHASONE DIPROPIONATE MONOHYDRATE
     Indication: ASTHMA
     Dosage: UNK
     Route: 048
     Dates: start: 20130726, end: 20161116
  34. KENALOG COMP. MED MYCOSTATIN [Concomitant]
     Active Substance: GRAMICIDIN\NEOMYCIN SULFATE\NYSTATIN\TRIAMCINOLONE ACETONIDE
     Indication: MYALGIA
     Dosage: UNK
     Route: 048
     Dates: start: 20070210, end: 20091216
  35. PREDNISONE. [Concomitant]
     Active Substance: PREDNISONE
     Indication: MYALGIA
     Dosage: UNK
     Route: 048
     Dates: start: 20070210, end: 20140723
  36. PROTOPIC [Concomitant]
     Active Substance: TACROLIMUS
     Indication: ECZEMA
     Dosage: UNK
     Route: 048
     Dates: start: 20081216, end: 20161116
  37. TESTOSTERONE CYPIONATE. [Concomitant]
     Active Substance: TESTOSTERONE CYPIONATE
     Indication: BLOOD TESTOSTERONE DECREASED
     Dosage: UNK
     Route: 048
     Dates: start: 20150805, end: 20161116
  38. NAPROXEN. [Concomitant]
     Active Substance: NAPROXEN
     Indication: PAIN
  39. VIDEX EC [Concomitant]
     Active Substance: DIDANOSINE
     Indication: HIV INFECTION
     Route: 048
  40. ENALAPRIL [Concomitant]
     Active Substance: ENALAPRIL
     Indication: HYPERTENSION
     Dosage: UNK
     Route: 048
     Dates: start: 20080401
  41. ZAFIRLUKAST. [Concomitant]
     Active Substance: ZAFIRLUKAST
     Indication: ASTHMA
     Dosage: UNK
     Route: 048
     Dates: start: 20130227
  42. GABAPENTIN. [Concomitant]
     Active Substance: GABAPENTIN
     Indication: NEUROPATHY PERIPHERAL
  43. CLOBETASOL PROPIONATE. [Concomitant]
     Active Substance: CLOBETASOL PROPIONATE
     Indication: ECZEMA
     Dosage: UNK
     Route: 048
     Dates: start: 20131106, end: 20161116
  44. TRAMADOL. [Concomitant]
     Active Substance: TRAMADOL
     Indication: NEUROPATHY PERIPHERAL
  45. FLOMAX [MORNIFLUMATE] [Concomitant]
     Active Substance: MORNIFLUMATE
     Indication: BENIGN PROSTATIC HYPERPLASIA
     Dosage: UNK
     Route: 048
     Dates: start: 20180608
  46. LIDOCAINE. [Concomitant]
     Active Substance: LIDOCAINE
  47. ESCITALOPRAM [Concomitant]
     Active Substance: ESCITALOPRAM OXALATE
  48. PRAMIPEXOLE. [Concomitant]
     Active Substance: PRAMIPEXOLE
  49. TRUVADA [Suspect]
     Active Substance: EMTRICITABINE\TENOFOVIR DISOPROXIL FUMARATE
     Indication: HIV INFECTION
     Dosage: UNK
     Route: 048
     Dates: start: 20130724, end: 20150423
  50. GENVOYA [Concomitant]
     Active Substance: COBICISTAT\ELVITEGRAVIR\EMTRICITABINE\TENOFOVIR ALAFENAMIDE FUMARATE
     Indication: HIV INFECTION
     Dosage: UNK
     Route: 048
     Dates: start: 201601
  51. NORVIR [Concomitant]
     Active Substance: RITONAVIR
     Indication: HIV INFECTION
     Dosage: UNK
     Route: 048
     Dates: start: 20180516
  52. ELVITEGRAVIR [Concomitant]
     Active Substance: ELVITEGRAVIR
     Indication: HIV INFECTION
     Dosage: UNK
  53. ADVAIR UNSPEC [Concomitant]
     Indication: ASTHMA
     Route: 048
  54. TESTOSTERONE. [Concomitant]
     Active Substance: TESTOSTERONE
     Indication: BLOOD TESTOSTERONE DECREASED
     Dosage: UNK
     Route: 048
     Dates: start: 20161116
  55. FERROUS SULFATE. [Concomitant]
     Active Substance: FERROUS SULFATE

REACTIONS (15)
  - Impaired work ability [Unknown]
  - Emotional distress [Not Recovered/Not Resolved]
  - Depression [Not Recovered/Not Resolved]
  - Foot fracture [Not Recovered/Not Resolved]
  - Osteoporosis [Not Recovered/Not Resolved]
  - Economic problem [Not Recovered/Not Resolved]
  - Pain [Not Recovered/Not Resolved]
  - Tooth disorder [Not Recovered/Not Resolved]
  - Anhedonia [Not Recovered/Not Resolved]
  - Rib fracture [Not Recovered/Not Resolved]
  - Bone density decreased [Unknown]
  - Anxiety [Not Recovered/Not Resolved]
  - Dyspepsia [Unknown]
  - Hip fracture [Not Recovered/Not Resolved]
  - Loss of personal independence in daily activities [Unknown]

NARRATIVE: CASE EVENT DATE: 2017
